FAERS Safety Report 10125733 (Version 3)
Quarter: 2014Q3

REPORT INFORMATION
  Report Type: Spontaneous
  Country: JP (occurrence: JP)
  Receive Date: 20140425
  Receipt Date: 20140812
  Transmission Date: 20150326
  Serious: Yes (Other)
  Sender: FDA-Public Use
  Company Number: PHJP2014JP000745

PATIENT

DRUGS (7)
  1. TEGRETOL [Suspect]
     Active Substance: CARBAMAZEPINE
     Dosage: MOTHER DOSE: 1000 MG, DAILY
     Route: 064
  2. TEGRETOL [Suspect]
     Active Substance: CARBAMAZEPINE
     Dosage: MOTHER DOSE: 1200 MG, DAILY
     Route: 064
  3. TEGRETOL [Suspect]
     Active Substance: CARBAMAZEPINE
     Dosage: MOTHER DOSE: 1100 MG, DAILY (IN 3 DIVIDED DOSES)
     Route: 064
  4. TEGRETOL [Suspect]
     Active Substance: CARBAMAZEPINE
     Dosage: MOTHER DOSE: 1100 MG, DAILY
     Route: 064
  5. TEGRETOL [Suspect]
     Active Substance: CARBAMAZEPINE
     Dosage: MOTHER DOSE: 600 MG, DAILY
     Route: 064
  6. TEGRETOL [Suspect]
     Active Substance: CARBAMAZEPINE
     Dosage: MOTHER DOSE: 1200 MG, DAILY (400 MG THREE TIMES DAILY)
     Route: 064
  7. TEGRETOL [Suspect]
     Active Substance: CARBAMAZEPINE
     Dosage: MOTHER DOSE: 400 MG, TID
     Route: 064

REACTIONS (3)
  - Foetal distress syndrome [Unknown]
  - Foetal heart rate abnormal [Unknown]
  - Foetal exposure during pregnancy [Unknown]
